FAERS Safety Report 5226969-3 (Version None)
Quarter: 2007Q1

REPORT INFORMATION
  Report Type: 
  Country: None (occurrence: None)
  Receive Date: 20070202
  Receipt Date: 20070126
  Transmission Date: 20070707
  Serious: Yes (Hospitalization)
  Sender: FDA-Public Use
  Company Number: SE-BRACCO-BRO-011121

PATIENT
  Sex: Male

DRUGS (1)
  1. MULTIHANCE [Suspect]
     Route: 042

REACTIONS (3)
  - DEPRESSED MOOD [None]
  - HYPERTENSION [None]
  - NERVOUSNESS [None]
